FAERS Safety Report 20860839 (Version 1)
Quarter: 2022Q2

REPORT INFORMATION
  Report Type: Spontaneous
  Country: FR (occurrence: FR)
  Receive Date: 20220523
  Receipt Date: 20220523
  Transmission Date: 20220721
  Serious: Yes (Other)
  Sender: FDA-Public Use
  Company Number: None

PATIENT

DRUGS (6)
  1. VOLTAREN [Suspect]
     Active Substance: DICLOFENAC SODIUM
     Indication: Chemotherapy side effect prophylaxis
     Dosage: UNK DOSAGE NOT SPECIFIED
     Route: 048
     Dates: start: 20211115, end: 20211115
  2. APREPITANT [Suspect]
     Active Substance: APREPITANT
     Indication: Chemotherapy side effect prophylaxis
     Dosage: UNK DOSAGE NOT SPECIFIED
     Route: 048
     Dates: start: 20211115, end: 20211115
  3. PREDNISONE [Suspect]
     Active Substance: PREDNISONE
     Indication: Chemotherapy side effect prophylaxis
     Dosage: UNK DOSAGE NOT SPECIFIED
     Route: 048
     Dates: start: 20211115, end: 20211115
  4. GRANISETRON [Suspect]
     Active Substance: GRANISETRON
     Indication: Product used for unknown indication
     Dosage: UNK DOSAGE NOT SPECIFIED
     Route: 048
     Dates: start: 20211115, end: 20211115
  5. FLUOROURACIL [Suspect]
     Active Substance: FLUOROURACIL
     Indication: Rectosigmoid cancer
     Dosage: UNK DOSAGE NOT SPECIFIED
     Route: 041
     Dates: start: 20211115, end: 20211115
  6. OXALIPLATIN [Suspect]
     Active Substance: OXALIPLATIN
     Indication: Rectosigmoid cancer
     Dosage: UNK DOSAGE NOT SPECIFIED
     Route: 041
     Dates: start: 20211115, end: 20211115

REACTIONS (1)
  - Anaphylactoid reaction [Recovered/Resolved]

NARRATIVE: CASE EVENT DATE: 20211115
